FAERS Safety Report 8541084-9 (Version None)
Quarter: 2012Q3

REPORT INFORMATION
  Report Type: 
  Country: None (occurrence: None)
  Receive Date: 20120726
  Receipt Date: 20110823
  Transmission Date: 20120928
  Serious: No
  Sender: FDA-Public Use
  Company Number: US-ASTRAZENECA-2011SE50681

PATIENT
  Age: 80 Year
  Sex: Female
  Weight: 59.9 kg

DRUGS (2)
  1. CARB-LEDO [Concomitant]
  2. SEROQUEL [Suspect]
     Indication: PARKINSON'S DISEASE
     Route: 048
     Dates: start: 20101101

REACTIONS (2)
  - VISUAL IMPAIRMENT [None]
  - OFF LABEL USE [None]
